FAERS Safety Report 8122598-2 (Version None)
Quarter: 2012Q1

REPORT INFORMATION
  Report Type: 
  Country: None (occurrence: None)
  Receive Date: 20120208
  Receipt Date: 20120203
  Transmission Date: 20120608
  Serious: Yes (Hospitalization, Other)
  Sender: FDA-Public Use
  Company Number: US-MERCK-1109USA01005

PATIENT
  Age: 69 Year
  Sex: Female
  Weight: 64 kg

DRUGS (12)
  1. ALENDRONATE SODIUM [Suspect]
     Route: 048
     Dates: start: 20100422
  2. FOSAMAX [Suspect]
     Indication: OSTEOPOROSIS
     Route: 048
     Dates: start: 20021230, end: 20060401
  3. VITAMINS (UNSPECIFIED) [Concomitant]
     Route: 065
     Dates: start: 19610101
  4. FLAXSEED [Concomitant]
     Route: 065
     Dates: start: 19810101
  5. VITRON-C [Concomitant]
     Route: 065
     Dates: start: 19910101
  6. FOSAMAX PLUS D [Suspect]
     Indication: OSTEOPOROSIS
     Route: 048
     Dates: start: 20060501, end: 20080401
  7. FOSAMAX [Suspect]
     Indication: OSTEOPENIA
     Route: 048
     Dates: start: 20021230, end: 20060401
  8. FOSAMAX PLUS D [Suspect]
     Indication: OSTEOPENIA
     Route: 048
     Dates: start: 20060501, end: 20080401
  9. ALENDRONATE SODIUM [Suspect]
     Indication: OSTEOPOROSIS
     Route: 048
     Dates: start: 20080402, end: 20100101
  10. ALENDRONATE SODIUM [Suspect]
     Route: 048
     Dates: start: 20100422
  11. ALENDRONATE SODIUM [Suspect]
     Indication: OSTEOPENIA
     Route: 048
     Dates: start: 20080402, end: 20100101
  12. OMEGA-3 MARINE TRIGLYCERIDES [Concomitant]
     Route: 065
     Dates: start: 19810101

REACTIONS (43)
  - INTESTINAL OBSTRUCTION [None]
  - ARTHRITIS [None]
  - BACK PAIN [None]
  - MUSCLE STRAIN [None]
  - ARTHROPATHY [None]
  - PALPITATIONS [None]
  - ANAEMIA [None]
  - HYPERLIPIDAEMIA [None]
  - URTICARIA [None]
  - ENDOMETRIOSIS [None]
  - FATIGUE [None]
  - ADVERSE DRUG REACTION [None]
  - INSOMNIA [None]
  - FEMUR FRACTURE [None]
  - ATELECTASIS [None]
  - DACRYOSTENOSIS ACQUIRED [None]
  - PULMONARY FIBROSIS [None]
  - URINARY INCONTINENCE [None]
  - LIGAMENT DISORDER [None]
  - ATRIAL FIBRILLATION [None]
  - CALCIUM DEFICIENCY [None]
  - DRUG HYPERSENSITIVITY [None]
  - OVARIAN CYST [None]
  - SPINAL OSTEOARTHRITIS [None]
  - LIGAMENT SPRAIN [None]
  - SPINAL COLUMN STENOSIS [None]
  - SMALL INTESTINAL OBSTRUCTION [None]
  - RIB FRACTURE [None]
  - MIGRAINE [None]
  - HYPERSENSITIVITY [None]
  - DRUG INEFFECTIVE [None]
  - CATARACT [None]
  - CONTUSION [None]
  - FALL [None]
  - ALLERGIC OEDEMA [None]
  - ANXIETY DISORDER [None]
  - BRADYCARDIA [None]
  - DEPRESSION [None]
  - VITAMIN D DEFICIENCY [None]
  - VITAMIN B12 DEFICIENCY [None]
  - LIMB INJURY [None]
  - INTERVERTEBRAL DISC PROTRUSION [None]
  - HYPERCHOLESTEROLAEMIA [None]
